FAERS Safety Report 23321278 (Version 6)
Quarter: 2024Q4

REPORT INFORMATION
  Report Type: Report from Study
  Country: MX (occurrence: MX)
  Receive Date: 20231220
  Receipt Date: 20241031
  Transmission Date: 20250114
  Serious: Yes (Other)
  Sender: TAKEDA
  Company Number: MX-TAKEDA-2023TUS090528

PATIENT
  Age: 49 Year
  Sex: Female

DRUGS (5)
  1. ICATIBANT [Suspect]
     Active Substance: ICATIBANT ACETATE
     Indication: Hereditary angioedema
     Dosage: UNK
     Route: 058
     Dates: start: 20200101
  2. ICATIBANT [Suspect]
     Active Substance: ICATIBANT ACETATE
     Indication: Hereditary angioedema
     Dosage: UNK
     Route: 058
     Dates: start: 20200101
  3. TAKHZYRO [Suspect]
     Active Substance: LANADELUMAB-FLYO
     Indication: Hereditary angioedema
     Dosage: 300 MILLIGRAM, Q3WEEKS
     Route: 058
     Dates: start: 20240103
  4. TAKHZYRO [Suspect]
     Active Substance: LANADELUMAB-FLYO
     Dosage: 300 MILLIGRAM
     Route: 058
  5. ENOXAPARIN [Concomitant]
     Active Substance: ENOXAPARIN
     Indication: Hereditary angioedema
     Dosage: 4 MILLIGRAM
     Route: 065

REACTIONS (19)
  - Multiple sclerosis [Unknown]
  - Hemiparesis [Not Recovered/Not Resolved]
  - Erectile dysfunction [Not Recovered/Not Resolved]
  - Pneumonia [Recovered/Resolved]
  - Thrombosis [Recovered/Resolved]
  - Muscular weakness [Unknown]
  - Fall [Unknown]
  - Panic attack [Unknown]
  - Joint stiffness [Unknown]
  - Paraesthesia [Unknown]
  - Gait disturbance [Unknown]
  - Mobility decreased [Unknown]
  - Hereditary angioedema [Recovering/Resolving]
  - Application site pain [Unknown]
  - Depression [Not Recovered/Not Resolved]
  - Foot fracture [Recovering/Resolving]
  - Nervous system disorder [Not Recovered/Not Resolved]
  - Asthenia [Not Recovered/Not Resolved]
  - Painful respiration [Recovered/Resolved]

NARRATIVE: CASE EVENT DATE: 20240108
